FAERS Safety Report 13815519 (Version 1)
Quarter: 2017Q3

REPORT INFORMATION
  Report Type: Spontaneous
  Country: DE (occurrence: DE)
  Receive Date: 20170731
  Receipt Date: 20170731
  Transmission Date: 20171127
  Serious: Yes (Other)
  Sender: FDA-Public Use
  Company Number: DE-LPDUSPRD-20171046

PATIENT
  Age: 1 Day
  Sex: Male

DRUGS (1)
  1. FERINJECT [Suspect]
     Active Substance: FERRIC CARBOXYMALTOSE
     Route: 064
     Dates: start: 20160719, end: 20160719

REACTIONS (2)
  - Foetal exposure during pregnancy [Unknown]
  - Neonatal respiratory arrest [Unknown]

NARRATIVE: CASE EVENT DATE: 20160719
